FAERS Safety Report 15870841 (Version 1)
Quarter: 2019Q1

REPORT INFORMATION
  Report Type: Report from Study
  Country: US (occurrence: US)
  Receive Date: 20190126
  Receipt Date: 20190126
  Transmission Date: 20190417
  Serious: Yes (Hospitalization)
  Sender: FDA-Public Use
  Company Number: US-ROCHE-2246765

PATIENT
  Sex: Female

DRUGS (5)
  1. VERAPAMIL HCL [Concomitant]
     Active Substance: VERAPAMIL HYDROCHLORIDE
     Dosage: ONGOING:UNKNOWN
     Route: 065
  2. PROAIR HFA [Concomitant]
     Active Substance: ALBUTEROL SULFATE
     Dosage: ONGOING:UNKNOWN
     Route: 065
  3. WARFARIN SODIUM. [Concomitant]
     Active Substance: WARFARIN SODIUM
     Dosage: ONGOING:UNKNOWN
     Route: 065
  4. ESBRIET [Suspect]
     Active Substance: PIRFENIDONE
     Indication: IDIOPATHIC PULMONARY FIBROSIS
     Dosage: ONGOING:UNKNOWN
     Route: 048
     Dates: start: 20180111
  5. POTASSIUM CHLORIDE ERT [Concomitant]
     Dosage: ONGOING : UNKNOWN
     Route: 065

REACTIONS (2)
  - Dyspnoea [Unknown]
  - Atrioventricular block [Unknown]
